FAERS Safety Report 7516665-1 (Version None)
Quarter: 2011Q2

REPORT INFORMATION
  Report Type: 
  Country: None (occurrence: None)
  Receive Date: 20110601
  Receipt Date: 20110525
  Transmission Date: 20111010
  Serious: Yes (Other)
  Sender: FDA-Public Use
  Company Number: US-ROCHE-779396

PATIENT
  Sex: Female
  Weight: 88.9 kg

DRUGS (3)
  1. PROTONIX [Concomitant]
  2. VAGIFEM [Concomitant]
     Route: 048
  3. BONIVA [Suspect]
     Indication: OSTEOPOROSIS
     Dosage: ROUTE: INTRAVENOUS PUSH DOSE: 3MG/3ML
     Route: 042
     Dates: start: 20090522, end: 20110225

REACTIONS (3)
  - BALANCE DISORDER [None]
  - FALL [None]
  - WRIST FRACTURE [None]
